FAERS Safety Report 13633838 (Version 1)
Quarter: 2017Q2

REPORT INFORMATION
  Report Type: Spontaneous
  Country: US (occurrence: US)
  Receive Date: 20170531
  Receipt Date: 20170531
  Transmission Date: 20170830
  Serious: No
  Sender: FDA-Public Use
  Company Number: US-ASTELLAS-1582037

PATIENT
  Sex: Female

DRUGS (10)
  1. METFORMIN [Concomitant]
     Active Substance: METFORMIN HYDROCHLORIDE
     Route: 065
  2. VITAMIN C [Concomitant]
     Active Substance: ASCORBIC ACID
  3. HUMALOG [Concomitant]
     Active Substance: INSULIN LISPRO
  4. METOLAZONE. [Concomitant]
     Active Substance: METOLAZONE
  5. TARCEVA [Suspect]
     Active Substance: ERLOTINIB HYDROCHLORIDE
     Indication: LUNG NEOPLASM MALIGNANT
     Route: 048
     Dates: start: 20150324
  6. ZAROXOLYN [Concomitant]
     Active Substance: METOLAZONE
  7. ZOCOR [Concomitant]
     Active Substance: SIMVASTATIN
  8. SIMVASTATIN. [Concomitant]
     Active Substance: SIMVASTATIN
  9. TARCEVA [Suspect]
     Active Substance: ERLOTINIB HYDROCHLORIDE
     Route: 048
     Dates: start: 20150326
  10. CLONIDINE. [Concomitant]
     Active Substance: CLONIDINE

REACTIONS (2)
  - Cough [Unknown]
  - Nausea [Unknown]
